FAERS Safety Report 5935596-1 (Version None)
Quarter: 2008Q4

REPORT INFORMATION
  Report Type: 
  Country: None (occurrence: None)
  Receive Date: 20081030
  Receipt Date: 20081027
  Transmission Date: 20090506
  Serious: Yes (Hospitalization)
  Sender: FDA-Public Use
  Company Number: B0542355A

PATIENT
  Age: 78 Year
  Sex: Male

DRUGS (7)
  1. VALTREX [Suspect]
     Indication: FACIAL PALSY
     Dosage: 250MG PER DAY
     Route: 048
     Dates: start: 20080725, end: 20080726
  2. FUROSEMIDE [Concomitant]
     Route: 065
  3. DIOVAN [Concomitant]
     Route: 048
  4. LONGES [Concomitant]
     Route: 048
  5. ARGAMATE [Concomitant]
     Route: 048
  6. UNKNOWN DRUG [Concomitant]
     Route: 048
  7. UNKNOWN DRUG [Concomitant]

REACTIONS (3)
  - CEREBELLAR ATAXIA [None]
  - DYSARTHRIA [None]
  - MUSCULAR WEAKNESS [None]
